FAERS Safety Report 14347186 (Version 1)
Quarter: 2018Q1

REPORT INFORMATION
  Report Type: Spontaneous
  Country: US (occurrence: US)
  Receive Date: 20180102
  Receipt Date: 20180102
  Transmission Date: 20180509
  Serious: No
  Sender: FDA-Public Use
  Company Number: None

PATIENT
  Age: 31 Year
  Sex: Female
  Weight: 117 kg

DRUGS (5)
  1. ENSKYCE HORMONAL BIRTH CONTROL [Concomitant]
  2. VITAMIN D3 [Concomitant]
     Active Substance: CHOLECALCIFEROL
  3. PRISTIQ EXTENDED-RELEASE [Concomitant]
     Active Substance: DESVENLAFAXINE SUCCINATE
  4. CLONAZEPAM. [Concomitant]
     Active Substance: CLONAZEPAM
  5. DESVENLAFAXINE EXTENDED-RELEASE TABLETS 50MG [Suspect]
     Active Substance: DESVENLAFAXINE
     Indication: DEPRESSION
     Dosage: ?          QUANTITY:1 TABLET(S);?
     Route: 048
     Dates: start: 20171217, end: 20171230

REACTIONS (6)
  - Product substitution issue [None]
  - Drug ineffective [None]
  - Rash pruritic [None]
  - Rash generalised [None]
  - Insurance issue [None]
  - Rash erythematous [None]

NARRATIVE: CASE EVENT DATE: 20171217
